FAERS Safety Report 8233559 (Version 2)
Quarter: 2015Q1

REPORT INFORMATION
  Report Type: Spontaneous
  Country: US (occurrence: US)
  Receive Date: 20111107
  Receipt Date: 20150325
  Transmission Date: 20150721
  Serious: Yes (Hospitalization, Other)
  Sender: FDA-Public Use
  Company Number: US-AMGEN-USASP2011057101

PATIENT
  Age: 61 Year
  Sex: Female

DRUGS (4)
  1. ADDERALL [Concomitant]
     Active Substance: AMPHETAMINE ASPARTATE\AMPHETAMINE SULFATE\DEXTROAMPHETAMINE SACCHARATE\DEXTROAMPHETAMINE SULFATE
  2. LORTAB [Concomitant]
     Active Substance: ACETAMINOPHEN\HYDROCODONE BITARTRATE
     Dosage: 7.5 MG/325MG
     Dates: start: 2008
  3. PROLIA [Suspect]
     Active Substance: DENOSUMAB
     Indication: OSTEOPOROSIS POSTMENOPAUSAL
     Dosage: 60 MG, Q6MO
     Route: 065
     Dates: start: 2012
  4. VITAMIN D [Concomitant]
     Active Substance: CHOLECALCIFEROL
     Dosage: 1 IU, 2 TIMES/WK

REACTIONS (14)
  - Haemorrhage [Unknown]
  - Loss of consciousness [Unknown]
  - Chest pain [Recovering/Resolving]
  - Depression [Unknown]
  - Concussion [Unknown]
  - Osteoporosis [Unknown]
  - Rib fracture [Unknown]
  - Body height decreased [Unknown]
  - Back pain [Recovered/Resolved]
  - Gastrointestinal disorder [Unknown]
  - Basal ganglia stroke [Unknown]
  - Compression fracture [Unknown]
  - Diarrhoea [Unknown]
  - Fall [Unknown]

NARRATIVE: CASE EVENT DATE: 20111013
